FAERS Safety Report 9171046 (Version 2)
Quarter: 2013Q2

REPORT INFORMATION
  Report Type: Spontaneous
  Country: US (occurrence: US)
  Receive Date: 20130319
  Receipt Date: 20130401
  Transmission Date: 20140414
  Serious: Yes (Other)
  Sender: FDA-Public Use
  Company Number: US-PFIZER INC-2013089136

PATIENT
  Age: 64 Year
  Sex: Male
  Weight: 92.97 kg

DRUGS (6)
  1. CELEBREX [Suspect]
     Indication: ARTHRITIS
     Dosage: 200 MG, AS NEEDED
     Route: 048
     Dates: start: 2001, end: 2002
  2. CELEBREX [Suspect]
     Indication: SWELLING
     Dosage: 200 MG, DAILY
     Route: 048
     Dates: start: 2002, end: 201303
  3. SYMBICORT [Concomitant]
     Indication: DYSPNOEA
     Dosage: UNK
  4. PREDNISONE [Concomitant]
     Indication: DYSPNOEA
     Dosage: AS NEEDED
  5. TRAZODONE HYDROCHLORIDE [Concomitant]
     Indication: ANXIETY
     Dosage: 100 MG (2 TABLETS OF 50MG) DAILY AT BEDTIME
  6. TRAZODONE HYDROCHLORIDE [Concomitant]
     Indication: DEPRESSION

REACTIONS (12)
  - Collagen disorder [Unknown]
  - Staphylococcal infection [Unknown]
  - Arthropathy [Unknown]
  - Fall [Unknown]
  - Depression [Unknown]
  - Anxiety [Unknown]
  - Frustration [Unknown]
  - Pain [Unknown]
  - Gait disturbance [Unknown]
  - Inflammation [Unknown]
  - Malaise [Unknown]
  - Joint swelling [Not Recovered/Not Resolved]
